FAERS Safety Report 8102284-5 (Version None)
Quarter: 2012Q1

REPORT INFORMATION
  Report Type: 
  Country: None (occurrence: None)
  Receive Date: 20120201
  Receipt Date: 20120126
  Transmission Date: 20120608
  Serious: No
  Sender: FDA-Public Use
  Company Number: US-PFIZER INC-2012022663

PATIENT
  Sex: Female

DRUGS (1)
  1. LYRICA [Suspect]
     Indication: TREMOR
     Dosage: UNK

REACTIONS (5)
  - HEADACHE [None]
  - MUSCULOSKELETAL PAIN [None]
  - BACK PAIN [None]
  - TREMOR [None]
  - PAIN [None]
